FAERS Safety Report 7603559-6 (Version None)
Quarter: 2011Q3

REPORT INFORMATION
  Report Type: 
  Country: None (occurrence: None)
  Receive Date: 20110711
  Receipt Date: 20110711
  Transmission Date: 20111222
  Serious: Yes (Hospitalization, Other)
  Sender: FDA-Public Use
  Company Number: None

PATIENT
  Age: 76 Year
  Sex: Female

DRUGS (4)
  1. CARVEDILOL [Concomitant]
  2. REVLIMID [Suspect]
     Indication: MULTIPLE MYELOMA
     Dosage: REVLIMID 10 MG DAILY X21D/28D ORALLY
     Route: 048
     Dates: start: 20110526, end: 20110606
  3. WARFARIN SODIUM [Concomitant]
  4. LISINOPRIL [Concomitant]

REACTIONS (7)
  - EAR PAIN [None]
  - CONFUSIONAL STATE [None]
  - OEDEMA PERIPHERAL [None]
  - BLEPHARITIS [None]
  - TYMPANIC MEMBRANE PERFORATION [None]
  - OTITIS MEDIA [None]
  - DIARRHOEA [None]
